FAERS Safety Report 12644397 (Version 2)
Quarter: 2016Q3

REPORT INFORMATION
  Report Type: Spontaneous
  Country: CN (occurrence: CN)
  Receive Date: 20160811
  Receipt Date: 20160825
  Transmission Date: 20161109
  Serious: Yes (Other)
  Sender: FDA-Public Use
  Company Number: CN-BAYER-2016-149474

PATIENT

DRUGS (2)
  1. KOGENATE FS [Suspect]
     Active Substance: ANTIHEMOPHILIC FACTOR, HUMAN RECOMBINANT
     Dosage: UNK
  2. KOGENATE FS [Suspect]
     Active Substance: ANTIHEMOPHILIC FACTOR, HUMAN RECOMBINANT
     Dosage: 1 DF, BID ONE FOR THE MORNING AND THE OTHER ONE FOR THE NIGHT
     Dates: start: 201607

REACTIONS (2)
  - Haemorrhage [Recovering/Resolving]
  - Product quality issue [None]

NARRATIVE: CASE EVENT DATE: 201607
